FAERS Safety Report 7466555-8 (Version None)
Quarter: 2011Q2

REPORT INFORMATION
  Report Type: 
  Country: None (occurrence: None)
  Receive Date: 20110509
  Receipt Date: 20110503
  Transmission Date: 20111010
  Serious: Yes (Hospitalization)
  Sender: FDA-Public Use
  Company Number: US-ABBOTT-11P-163-0722931-00

PATIENT
  Age: 77 Year
  Sex: Male

DRUGS (1)
  1. HUMIRA [Suspect]
     Indication: CROHN'S DISEASE
     Dates: start: 20110101, end: 20110301

REACTIONS (6)
  - PNEUMONIA [None]
  - DRUG INEFFECTIVE [None]
  - PYREXIA [None]
  - SEPTIC SHOCK [None]
  - CELLULITIS [None]
  - HYPOTENSION [None]
